FAERS Safety Report 8949895 (Version 3)
Quarter: 2013Q4

REPORT INFORMATION
  Report Type: Spontaneous
  Country: DK (occurrence: DK)
  Receive Date: 20121206
  Receipt Date: 20131127
  Transmission Date: 20140711
  Serious: Yes (Hospitalization, Other)
  Sender: FDA-Public Use
  Company Number: DK-PFIZER INC-2012299982

PATIENT
  Age: 55 Year
  Sex: Female

DRUGS (4)
  1. FARMORUBICIN [Suspect]
     Indication: INVASIVE DUCTAL BREAST CARCINOMA
     Dosage: 750 MG 7 TIMES PER WEEK
     Dates: start: 20050629, end: 20051129
  2. FLUOROURACIL [Suspect]
     Indication: INVASIVE DUCTAL BREAST CARCINOMA
     Dosage: 7500 MG 7 TIMES PEER WEEK
     Dates: start: 20050629, end: 20051129
  3. SENDOXAN [Suspect]
     Indication: BREAST CANCER
     Dosage: 7500 MG 7 TIMES PER WEEK
     Dates: start: 20050629, end: 20051129
  4. TAMBOCOR [Concomitant]
     Dosage: 100 MG, 2X/DAY
     Dates: start: 20050509

REACTIONS (5)
  - Atrial fibrillation [Recovered/Resolved]
  - Cardioversion [Unknown]
  - Oedema peripheral [Not Recovered/Not Resolved]
  - Heart rate increased [Recovered/Resolved]
  - Dyspnoea exertional [Recovered/Resolved]
